FAERS Safety Report 14197448 (Version 1)
Quarter: 2017Q4

REPORT INFORMATION
  Report Type: Spontaneous
  Country: FR (occurrence: FR)
  Receive Date: 20171116
  Receipt Date: 20171116
  Transmission Date: 20180321
  Serious: Yes (Hospitalization)
  Sender: FDA-Public Use
  Company Number: FR-MERCK KGAA-2034411

PATIENT
  Age: 66 Year

DRUGS (1)
  1. NOVOTHYROX [Suspect]
     Active Substance: LEVOTHYROXINE SODIUM
     Indication: THYROIDECTOMY
     Route: 048
     Dates: start: 20170408

REACTIONS (6)
  - Atrial fibrillation [Unknown]
  - Malaise [Unknown]
  - Hypertension [Unknown]
  - Dyspnoea [Unknown]
  - Vertigo [Unknown]
  - Hot flush [Unknown]

NARRATIVE: CASE EVENT DATE: 20170722
